FAERS Safety Report 4752645-7 (Version None)
Quarter: 2005Q3

REPORT INFORMATION
  Report Type: 
  Country: None (occurrence: None)
  Receive Date: 20050823
  Receipt Date: 20050804
  Transmission Date: 20060218
  Serious: Yes (Hospitalization)
  Sender: FDA-Public Use
  Company Number: EWC050845321

PATIENT
  Age: 70 Year
  Sex: Female

DRUGS (2)
  1. ZYPREXA [Suspect]
     Indication: ABNORMAL BEHAVIOUR
     Dosage: 2.5 MG DAY
     Dates: start: 20030101, end: 20050701
  2. ZYPREXA [Suspect]
     Indication: COGNITIVE DETERIORATION
     Dosage: 2.5 MG DAY
     Dates: start: 20030101, end: 20050701

REACTIONS (2)
  - TEMPERATURE REGULATION DISORDER [None]
  - UROSEPSIS [None]
